FAERS Safety Report 16409126 (Version 4)
Quarter: 2020Q4

REPORT INFORMATION
  Report Type: Spontaneous
  Country: JP (occurrence: JP)
  Receive Date: 20190610
  Receipt Date: 20201216
  Transmission Date: 20210113
  Serious: Yes (Death, Life-Threatening, Other)
  Sender: FDA-Public Use
  Company Number: JP-MACLEODS PHARMACEUTICALS US LTD-MAC2019021616

PATIENT

DRUGS (2)
  1. FLUNITRAZEPAM [Concomitant]
     Active Substance: FLUNITRAZEPAM
     Indication: PRODUCT USED FOR UNKNOWN INDICATION
     Dosage: UNK, 50 EMPTY CAPSULES OF OLANZAPINE (10 MG) AND FLUNITRAZEPAM (1 MG)
     Route: 065
  2. OLANZAPINE 10 MG [Suspect]
     Active Substance: OLANZAPINE
     Indication: PRODUCT USED FOR UNKNOWN INDICATION
     Dosage: UNK, 50 EMPTY CAPSULES OF OLANZAPINE (10 MG) AND FLUNITRAZEPAM (1 MG)
     Route: 065

REACTIONS (11)
  - Hyperglycaemia [Fatal]
  - Pneumomediastinum [Fatal]
  - Pneumonia [Fatal]
  - Overdose [Fatal]
  - Acute interstitial pneumonitis [Fatal]
  - Subcutaneous emphysema [Fatal]
  - Petechiae [Fatal]
  - Toxicity to various agents [Fatal]
  - Cardio-respiratory arrest [Fatal]
  - Lung consolidation [Fatal]
  - Ketoacidosis [Fatal]
